FAERS Safety Report 9691808 (Version 1)
Quarter: 2013Q4

REPORT INFORMATION
  Report Type: Spontaneous
  Country: CH (occurrence: CH)
  Receive Date: 20131115
  Receipt Date: 20131115
  Transmission Date: 20140711
  Serious: Yes (Other)
  Sender: FDA-Public Use
  Company Number: CH-ASTRAZENECA-2013SE82196

PATIENT
  Age: 75 Year
  Sex: Male
  Weight: 70 kg

DRUGS (6)
  1. BRILIQUE [Suspect]
     Indication: MYOCARDIAL ISCHAEMIA
     Route: 048
     Dates: start: 20130607, end: 20130910
  2. ASPIRIN CARDIO [Concomitant]
     Indication: MYOCARDIAL ISCHAEMIA
     Route: 048
  3. LISINOPRIL [Concomitant]
     Indication: MYOCARDIAL ISCHAEMIA
     Route: 048
     Dates: start: 20130607
  4. ATORVASTATIN [Concomitant]
     Indication: MYOCARDIAL ISCHAEMIA
     Route: 048
     Dates: start: 20130607
  5. TRAZODONE [Concomitant]
     Route: 048
  6. SYMFONA [Concomitant]
     Route: 048

REACTIONS (3)
  - Sleep apnoea syndrome [Recovering/Resolving]
  - Dyspnoea exertional [Recovered/Resolved]
  - Dyspnoea paroxysmal nocturnal [Recovered/Resolved]
